FAERS Safety Report 19770992 (Version 3)
Quarter: 2021Q4

REPORT INFORMATION
  Report Type: Spontaneous
  Country: US (occurrence: US)
  Receive Date: 20210831
  Receipt Date: 20211008
  Transmission Date: 20220303
  Serious: Yes (Hospitalization, Other)
  Sender: FDA-Public Use
  Company Number: 2021A695675

PATIENT
  Age: 24756 Day
  Sex: Male
  Weight: 83.9 kg

DRUGS (3)
  1. SYMBICORT [Suspect]
     Active Substance: BUDESONIDE\FORMOTEROL FUMARATE DIHYDRATE
     Indication: Respiratory disorder
     Dosage: 2 DF. TWO TIMES A DAY
     Route: 055
     Dates: start: 202001, end: 20210730
  2. SYMBICORT [Suspect]
     Active Substance: BUDESONIDE\FORMOTEROL FUMARATE DIHYDRATE
     Indication: Respiratory disorder
     Dosage: 2 DF. TWO TIMES A DAY
     Route: 055
     Dates: start: 20210820
  3. BUDESONIDE\FORMOTEROL\GLYCOPYRRONIUM [Suspect]
     Active Substance: BUDESONIDE\FORMOTEROL\GLYCOPYRRONIUM
     Indication: Dyspnoea
     Route: 055
     Dates: start: 20210730

REACTIONS (11)
  - SARS-CoV-2 test positive [Unknown]
  - COVID-19 pneumonia [Unknown]
  - Prostatic disorder [Recovered/Resolved]
  - Respiratory disorder [Unknown]
  - Dyspnoea [Unknown]
  - Decreased activity [Unknown]
  - Product dose omission issue [Unknown]
  - Intentional device misuse [Unknown]
  - Wrong technique in device usage process [Unknown]
  - Device issue [Unknown]
  - Device use issue [Unknown]

NARRATIVE: CASE EVENT DATE: 20201002
